FAERS Safety Report 22295802 (Version 1)
Quarter: 2023Q2

REPORT INFORMATION
  Report Type: Spontaneous
  Country: US (occurrence: None)
  Receive Date: 20230507
  Receipt Date: 20230507
  Transmission Date: 20230721
  Serious: Yes (Other)
  Sender: FDA-Public Use
  Company Number: None

PATIENT
  Age: 25 Year
  Sex: Male
  Weight: 76.5 kg

DRUGS (2)
  1. DULOXETINE HYDROCHLORIDE [Suspect]
     Active Substance: DULOXETINE HYDROCHLORIDE
     Indication: Major depression
     Dosage: 1 CAPSULE DAILY ORAL?
     Route: 048
  2. DULOXETINE HYDROCHLORIDE [Suspect]
     Active Substance: DULOXETINE HYDROCHLORIDE
     Indication: Generalised anxiety disorder

REACTIONS (4)
  - Dissociation [None]
  - Depression [None]
  - Dysphoria [None]
  - Therapy interrupted [None]

NARRATIVE: CASE EVENT DATE: 20230507
